FAERS Safety Report 18686930 (Version 1)
Quarter: 2020Q4

REPORT INFORMATION
  Report Type: Spontaneous
  Country: US (occurrence: US)
  Receive Date: 20201231
  Receipt Date: 20201231
  Transmission Date: 20210114
  Serious: No
  Sender: FDA-Public Use
  Company Number: US-SA-2020SA369820

PATIENT

DRUGS (7)
  1. EPICERAM [Concomitant]
     Active Substance: DEVICE
     Dosage: UNK
  2. MUPIROCIN. [Concomitant]
     Active Substance: MUPIROCIN
     Dosage: UNK
  3. AQUAPHOR [WHITE SOFT PARAFFIN] [Concomitant]
     Dosage: UNK
  4. TRIAMCINOLONE ACETONIDE. [Concomitant]
     Active Substance: TRIAMCINOLONE ACETONIDE
     Dosage: UNK
  5. VITAMINS NOS [Concomitant]
     Active Substance: VITAMINS
     Dosage: UNK
  6. DUPIXENT [Suspect]
     Active Substance: DUPILUMAB
     Indication: DERMATITIS ATOPIC
     Dosage: 600 MG, 1X
     Route: 058
     Dates: start: 20201202, end: 20201202
  7. DOXEPIN [Concomitant]
     Active Substance: DOXEPIN
     Dosage: UNK UNK, HS

REACTIONS (3)
  - Product use issue [Unknown]
  - Pain [Recovered/Resolved]
  - Rash macular [Not Recovered/Not Resolved]

NARRATIVE: CASE EVENT DATE: 202012
